FAERS Safety Report 8624582 (Version 2)
Quarter: 2013Q4

REPORT INFORMATION
  Report Type: Report from Study
  Country: AR (occurrence: AR)
  Receive Date: 20120620
  Receipt Date: 20131204
  Transmission Date: 20140711
  Serious: Yes (Other)
  Sender: FDA-Public Use
  Company Number: AR-ROCHE-1079461

PATIENT
  Age: 83 Year
  Sex: Female

DRUGS (1)
  1. RANIBIZUMAB [Suspect]
     Indication: MACULOPATHY
     Dosage: 3 OR 4 AMPOULES
     Route: 050
     Dates: start: 2012

REACTIONS (4)
  - Hip fracture [Recovered/Resolved]
  - Fall [Recovered/Resolved]
  - Blood glucose increased [Recovered/Resolved]
  - Femur fracture [Recovered/Resolved]
